FAERS Safety Report 4342753-7 (Version None)
Quarter: 2004Q2

REPORT INFORMATION
  Report Type: 
  Country: None (occurrence: None)
  Receive Date: 20040415
  Receipt Date: 19961031
  Transmission Date: 20050107
  Serious: Yes (Death, Life-Threatening, Hospitalization)
  Sender: FDA-Public Use
  Company Number: WAES 96120620

PATIENT
  Age: 1 Day
  Sex: Male

DRUGS (7)
  1. INDOCIN I.V. [Suspect]
     Indication: PATENT DUCTUS ARTERIOSUS
     Dosage: 150 MICROGM DAILY IV; 140 MICROGM DAILY
     Route: 042
     Dates: start: 19960915, end: 19960915
  2. INDOCIN I.V. [Suspect]
     Indication: PATENT DUCTUS ARTERIOSUS
     Dosage: 150 MICROGM DAILY IV; 140 MICROGM DAILY
     Route: 042
     Dates: start: 19960916, end: 19960916
  3. AMPICILLIN/CLOXACILLIN NA [Concomitant]
  4. ASSISTED VENTILATION [Concomitant]
  5. CEFOTAXIME NA (SYM-ISOMER) [Concomitant]
  6. DOBUTAMINE [Concomitant]
  7. DOPAMINE HCI [Concomitant]

REACTIONS (9)
  - BLOOD CREATININE INCREASED [None]
  - BLOOD UREA INCREASED [None]
  - ENTERITIS NECROTICANS [None]
  - FLATULENCE [None]
  - GASTROINTESTINAL PERFORATION [None]
  - HEART RATE DECREASED [None]
  - RENAL IMPAIRMENT [None]
  - SKIN DISCOLOURATION [None]
  - VOMITING [None]
